FAERS Safety Report 4555528-0 (Version None)
Quarter: 2005Q1

REPORT INFORMATION
  Report Type: 
  Country: None (occurrence: None)
  Receive Date: 20050118
  Receipt Date: 20050118
  Transmission Date: 20050727
  Serious: Yes (Other)
  Sender: FDA-Public Use
  Company Number: None

PATIENT
  Age: 21 Year
  Sex: Male

DRUGS (1)
  1. ULTRAVIST 300 [Suspect]
     Dosage: 100 CC

REACTIONS (6)
  - ERYTHEMA [None]
  - NASAL CONGESTION [None]
  - NASOPHARYNGEAL DISORDER [None]
  - PRURITUS [None]
  - SWELLING FACE [None]
  - URTICARIA [None]
